FAERS Safety Report 10276044 (Version 1)
Quarter: 2014Q3

REPORT INFORMATION
  Report Type: Spontaneous
  Country: US (occurrence: None)
  Receive Date: 20140701
  Receipt Date: 20140701
  Transmission Date: 20150326
  Serious: Yes (Hospitalization, Other)
  Sender: FDA-Public Use
  Company Number: 2009S1005106

PATIENT
  Age: 51 Year
  Sex: Female

DRUGS (6)
  1. ALDACTONE [Concomitant]
     Active Substance: SPIRONOLACTONE
  2. GOLYTELY [Suspect]
     Active Substance: POLYETHYLENE GLYCOL 3350\POTASSIUM CHLORIDE\SODIUM BICARBONATE\SODIUM CHLORIDE\SODIUM SULFATE ANHYDROUS
     Indication: COLONOSCOPY
     Dates: start: 20050721
  3. HYDROCHLOROTHIAZIDE (HYDROCHLOROTHIAZIDE) [Concomitant]
     Active Substance: HYDROCHLOROTHIAZIDE
  4. LISINOPRIL (LISINOPRIL) [Concomitant]
     Active Substance: LISINOPRIL
  5. ATENOLOL (ATENOLOL) [Concomitant]
     Active Substance: ATENOLOL
  6. LOVASTATIN (LOVASTATIN) [Concomitant]
     Active Substance: LOVASTATIN

REACTIONS (19)
  - Dizziness [None]
  - Viral infection [None]
  - Renal failure chronic [None]
  - Vomiting [None]
  - Bradycardia [None]
  - Haemoglobin decreased [None]
  - Burning sensation [None]
  - Large intestine polyp [None]
  - Chest pain [None]
  - Asthenia [None]
  - Gastrointestinal tract adenoma [None]
  - Hypokalaemia [None]
  - Nausea [None]
  - Renal failure acute [None]
  - Anaemia [None]
  - Pain [None]
  - Urinary tract infection [None]
  - Nephropathy [None]
  - Fatigue [None]

NARRATIVE: CASE EVENT DATE: 20050726
